FAERS Safety Report 13047996 (Version 1)
Quarter: 2016Q4

REPORT INFORMATION
  Report Type: Spontaneous
  Country: US (occurrence: US)
  Receive Date: 20161220
  Receipt Date: 20161220
  Transmission Date: 20170207
  Serious: Yes (Death)
  Sender: FDA-Public Use
  Company Number: None

PATIENT
  Age: 83 Year
  Sex: Male

DRUGS (10)
  1. LASIX [Concomitant]
     Active Substance: FUROSEMIDE
  2. EXJADE [Suspect]
     Active Substance: DEFERASIROX
  3. LUMIGAN [Concomitant]
     Active Substance: BIMATOPROST
  4. REFRESH GEL OPTIVE [Concomitant]
  5. FOLIC ACID. [Concomitant]
     Active Substance: FOLIC ACID
  6. SPIRONOLACT [Concomitant]
  7. CIPROFLOXACN [Concomitant]
     Active Substance: CIPROFLOXACIN
  8. RESTASIS [Concomitant]
     Active Substance: CYCLOSPORINE
  9. EXJADE [Suspect]
     Active Substance: DEFERASIROX
     Indication: HAEMOCHROMATOSIS
     Dosage: 500 MG WITH 250MG TAV (TOTAL 750MG)  ?IN 3,5 OZ WATER ON AN EMPTY STOMACH
     Dates: start: 201510, end: 20161204
  10. DOROZOLAMIDE [Concomitant]

REACTIONS (1)
  - Death [None]

NARRATIVE: CASE EVENT DATE: 20161204
